FAERS Safety Report 25434056 (Version 1)
Quarter: 2025Q2

REPORT INFORMATION
  Report Type: Spontaneous
  Country: FR (occurrence: FR)
  Receive Date: 20250613
  Receipt Date: 20250613
  Transmission Date: 20250717
  Serious: Yes (Other)
  Sender: SK LIFE SCIENCE
  Company Number: FR-ACRAF-2025-038097

PATIENT

DRUGS (2)
  1. XCOPRI [Suspect]
     Active Substance: CENOBAMATE
     Indication: Product used for unknown indication
     Dosage: 100 MILLIGRAM, QD
     Route: 065
     Dates: start: 202412
  2. XCOPRI [Suspect]
     Active Substance: CENOBAMATE
     Dosage: 125 MG DAILY
     Route: 065

REACTIONS (3)
  - Petit mal epilepsy [Unknown]
  - Off label use [Unknown]
  - Underdose [Unknown]
